FAERS Safety Report 6267901-3 (Version None)
Quarter: 2009Q3

REPORT INFORMATION
  Report Type: 
  Country: None (occurrence: None)
  Receive Date: 20090714
  Receipt Date: 20090706
  Transmission Date: 20100115
  Serious: Yes (Other)
  Sender: FDA-Public Use
  Company Number: CA-ABBOTT-09P-028-0579014-00

PATIENT
  Sex: Female
  Weight: 80 kg

DRUGS (3)
  1. HUMIRA [Suspect]
     Indication: PSORIASIS
     Route: 058
     Dates: start: 20070822
  2. MONOCOR [Concomitant]
     Indication: DRUG USE FOR UNKNOWN INDICATION
  3. SIMVASTATIN [Concomitant]
     Indication: DRUG USE FOR UNKNOWN INDICATION

REACTIONS (3)
  - CELLULITIS [None]
  - ERYTHEMA [None]
  - SWELLING [None]
